FAERS Safety Report 24916525 (Version 3)
Quarter: 2025Q2

REPORT INFORMATION
  Report Type: Spontaneous
  Country: IT (occurrence: None)
  Receive Date: 20250203
  Receipt Date: 20250407
  Transmission Date: 20250717
  Serious: Yes (Congenital Anomaly, Other)
  Sender: INCYTE
  Company Number: IT-002147023-NVSC2025IT016789

PATIENT
  Age: 1 Month

DRUGS (1)
  1. RUXOLITINIB [Suspect]
     Active Substance: RUXOLITINIB
     Indication: Foetal exposure during pregnancy

REACTIONS (3)
  - Bladder diverticulum [Unknown]
  - Congenital cystic kidney disease [Unknown]
  - Renal dysplasia [Unknown]
